FAERS Safety Report 18022100 (Version 2)
Quarter: 2020Q3

REPORT INFORMATION
  Report Type: Spontaneous
  Country: US (occurrence: US)
  Receive Date: 20200714
  Receipt Date: 20200721
  Transmission Date: 20201103
  Serious: Yes (Other)
  Sender: FDA-Public Use
  Company Number: US-PFIZER INC-2020266300

PATIENT
  Age: 35 Year
  Sex: Male

DRUGS (1)
  1. SULFASALAZINE. [Suspect]
     Active Substance: SULFASALAZINE
     Indication: HAEMATOCHEZIA
     Dosage: UNK (WITH TWO DOSES)

REACTIONS (3)
  - Diarrhoea haemorrhagic [Recovered/Resolved]
  - Colitis ulcerative [Recovered/Resolved]
  - Drug hypersensitivity [Unknown]
